FAERS Safety Report 10766485 (Version 1)
Quarter: 2015Q1

REPORT INFORMATION
  Report Type: Report from Study
  Country: BE (occurrence: BE)
  Receive Date: 20150205
  Receipt Date: 20150205
  Transmission Date: 20150721
  Serious: Yes (Death, Hospitalization)
  Sender: FDA-Public Use
  Company Number: BE-PFIZER INC-BE-WYE-G03536409

PATIENT
  Age: 64 Year
  Sex: Female

DRUGS (3)
  1. SIROLIMUS. [Concomitant]
     Active Substance: SIROLIMUS
     Dosage: UNK
     Dates: start: 20080226
  2. NO SUBJECT DRUG [Suspect]
     Active Substance: UNSPECIFIED INGREDIENT
     Dosage: NO DOSE GIVEN
     Route: 065
     Dates: start: 20080226
  3. CYCLOSPORINE. [Suspect]
     Active Substance: CYCLOSPORINE
     Dosage: UNK
     Dates: start: 20060426

REACTIONS (1)
  - Metastatic malignant melanoma [Fatal]

NARRATIVE: CASE EVENT DATE: 20090205
